FAERS Safety Report 9384292 (Version 2)
Quarter: 2016Q4

REPORT INFORMATION
  Report Type: Report from Study
  Country: CA (occurrence: CA)
  Receive Date: 20130705
  Receipt Date: 20161013
  Transmission Date: 20170207
  Serious: Yes (Other)
  Sender: FDA-Public Use
  Company Number: PHHY2013CA069077

PATIENT
  Age: 79 Year
  Sex: Male

DRUGS (1)
  1. GLEEVEC [Suspect]
     Active Substance: IMATINIB MESYLATE
     Indication: GASTROINTESTINAL STROMAL TUMOUR
     Dosage: UNK UKN, UNK
     Route: 048
     Dates: end: 201506

REACTIONS (3)
  - Gastrointestinal stromal tumour [Unknown]
  - Recurrent cancer [Unknown]
  - Calculus bladder [Unknown]

NARRATIVE: CASE EVENT DATE: 20130318
